FAERS Safety Report 4638096-4 (Version None)
Quarter: 2005Q2

REPORT INFORMATION
  Report Type: 
  Country: None (occurrence: None)
  Receive Date: 20050418
  Receipt Date: 20050411
  Transmission Date: 20051028
  Serious: Yes (Other)
  Sender: FDA-Public Use
  Company Number: PHBS2005BR05119

PATIENT
  Age: 38 Year
  Sex: Female
  Weight: 101 kg

DRUGS (1)
  1. CODATEN [Suspect]
     Indication: TENDONITIS
     Dosage: UNK, ONCE/SINGLE
     Route: 048
     Dates: start: 20050409, end: 20050409

REACTIONS (2)
  - HYPOKINESIA [None]
  - SENSORY LOSS [None]
